FAERS Safety Report 6296241-1 (Version None)
Quarter: 2009Q3

REPORT INFORMATION
  Report Type: 
  Country: None (occurrence: None)
  Receive Date: 20090804
  Receipt Date: 20090729
  Transmission Date: 20100115
  Serious: Yes (Hospitalization)
  Sender: FDA-Public Use
  Company Number: JP-ABBOTT-09P-087-0588244-00

PATIENT
  Sex: Female

DRUGS (12)
  1. DEPAKENE [Suspect]
     Indication: DEPRESSION
     Route: 048
     Dates: start: 20080901, end: 20090616
  2. LANSAP [Suspect]
     Indication: HELICOBACTER INFECTION
     Dosage: FORM: CARD
     Route: 048
     Dates: start: 20090608, end: 20090614
  3. SULPIRIDE [Suspect]
     Indication: DEPRESSION
     Route: 048
     Dates: start: 20080901, end: 20090616
  4. SOLANAX [Suspect]
     Indication: DEPRESSION
     Route: 048
     Dates: start: 20080901, end: 20090616
  5. TOLEDOMIN [Suspect]
     Indication: DEPRESSION
     Route: 048
     Dates: start: 20080901, end: 20090616
  6. PAXIL [Suspect]
     Indication: DEPRESSION
     Route: 048
     Dates: start: 20080901, end: 20090116
  7. ZYPREXA [Suspect]
     Indication: DEPRESSION
     Route: 048
     Dates: start: 20080901, end: 20090616
  8. MYSLEE [Suspect]
     Indication: DEPRESSION
     Route: 048
     Dates: start: 20080901, end: 20090116
  9. BIBITTOACE [Suspect]
     Indication: DEPRESSION
     Route: 048
     Dates: start: 20080901, end: 20090116
  10. ANAFRANIL [Suspect]
     Indication: DEPRESSION
     Route: 048
     Dates: start: 20080901, end: 20090116
  11. BOUFUUTSUUSHOUSAN [Suspect]
     Indication: DRUG USE FOR UNKNOWN INDICATION
     Route: 048
     Dates: start: 20080901, end: 20090116
  12. CHOLEBRINE [Suspect]
     Indication: DRUG USE FOR UNKNOWN INDICATION
     Route: 048
     Dates: start: 20080901, end: 20090116

REACTIONS (1)
  - TOXIC SKIN ERUPTION [None]
